FAERS Safety Report 9664086 (Version 1)
Quarter: 2013Q4

REPORT INFORMATION
  Report Type: Spontaneous
  Country: US (occurrence: None)
  Receive Date: 20131030
  Receipt Date: 20131030
  Transmission Date: 20140711
  Serious: Yes (Other)
  Sender: FDA-Public Use
  Company Number: None

PATIENT
  Age: 75 Year
  Sex: Female
  Weight: 58.97 kg

DRUGS (1)
  1. CIPROFLOXACIN [Suspect]
     Indication: INFECTION
     Dates: start: 201307

REACTIONS (4)
  - Joint stiffness [None]
  - Pain [None]
  - Abasia [None]
  - Muscle tightness [None]
